FAERS Safety Report 9163158 (Version 1)
Quarter: 2013Q1

REPORT INFORMATION
  Report Type: Spontaneous
  Country: US (occurrence: None)
  Receive Date: 20130313
  Receipt Date: 20130313
  Transmission Date: 20140127
  Serious: No
  Sender: FDA-Public Use
  Company Number: None

PATIENT
  Age: 87 Year
  Sex: Male
  Weight: 75 kg

DRUGS (1)
  1. GENTAMICIN [Suspect]
     Indication: CELLULITIS
     Dosage: 360 MG BASED ON TROUGH IV
     Route: 042
     Dates: start: 20120721, end: 20120817

REACTIONS (1)
  - Renal failure acute [None]
